FAERS Safety Report 4290957-4 (Version None)
Quarter: 2004Q1

REPORT INFORMATION
  Report Type: 
  Country: None (occurrence: None)
  Receive Date: 20040211
  Receipt Date: 20031020
  Transmission Date: 20041129
  Serious: No
  Sender: FDA-Public Use
  Company Number: US-GLAXOSMITHKLINE-A0430854A

PATIENT
  Age: 27 Year
  Sex: Female

DRUGS (2)
  1. PAXIL [Suspect]
     Indication: DEPRESSION
     Dosage: 20MG PER DAY
     Route: 048
  2. CONTRACEPTIVES [Concomitant]
     Route: 048

REACTIONS (4)
  - DIARRHOEA [None]
  - DIZZINESS [None]
  - HEAD DISCOMFORT [None]
  - NAUSEA [None]
